FAERS Safety Report 9290372 (Version 1)
Quarter: 2013Q2

REPORT INFORMATION
  Report Type: Spontaneous
  Country: BR (occurrence: BR)
  Receive Date: 20130515
  Receipt Date: 20130515
  Transmission Date: 20140414
  Serious: Yes (Hospitalization)
  Sender: FDA-Public Use
  Company Number: BR-PFIZER INC-2013143878

PATIENT
  Age: 82 Year
  Sex: Female

DRUGS (1)
  1. XALATAN [Suspect]
     Indication: GLAUCOMA
     Dosage: 3 UG (1 DROP IN EACH EYE), UNSPECIFIED FREQUENCY
     Route: 047
     Dates: start: 2003

REACTIONS (2)
  - Eye disorder [Unknown]
  - Intraocular pressure increased [Unknown]
